FAERS Safety Report 11105279 (Version 2)
Quarter: 2015Q2

REPORT INFORMATION
  Report Type: Spontaneous
  Country: FR (occurrence: FR)
  Receive Date: 20150512
  Receipt Date: 20150521
  Transmission Date: 20150821
  Serious: Yes (Life-Threatening, Disabling, Other)
  Sender: FDA-Public Use
  Company Number: FR-MYLANLABS-2015M1014924

PATIENT

DRUGS (9)
  1. FONDAPARINUX [Suspect]
     Active Substance: FONDAPARINUX
     Indication: DEEP VEIN THROMBOSIS
     Dosage: 1 DF, QD
     Route: 058
     Dates: start: 20150128, end: 20150203
  2. RIVOTRIL [Concomitant]
     Active Substance: CLONAZEPAM
     Dosage: 2 GTT, HS
     Dates: start: 20150121
  3. MIANSERIN [Concomitant]
     Active Substance: MIANSERIN
     Dosage: 10 MG, QD
  4. FORLAX [Concomitant]
     Active Substance: POLYETHYLENE GLYCOL 4000
     Dosage: UNK
     Route: 048
     Dates: start: 20150123
  5. LYRICA [Concomitant]
     Active Substance: PREGABALIN
     Dosage: 100 MG, BID
     Dates: start: 20150120
  6. DOLIPRANE [Concomitant]
     Active Substance: ACETAMINOPHEN
     Dosage: 1 GM, 4 IN 1 DAY, PRN
     Route: 048
     Dates: start: 20150123
  7. DUPHALAC [Concomitant]
     Active Substance: LACTULOSE
     Dosage: 3 SACHETS IN 1 DAY
     Route: 048
     Dates: start: 20150123
  8. SOTALOL. [Concomitant]
     Active Substance: SOTALOL
     Dosage: 80 MG, BID
     Dates: start: 20150120
  9. LOXEN                              /00639802/ [Concomitant]
     Active Substance: NICARDIPINE
     Dosage: 1 SINGLE ADMINISTRATION IN ALL UNTIL REPORTING
     Dates: start: 20150123

REACTIONS (1)
  - Cerebral haemorrhage [Recovered/Resolved with Sequelae]

NARRATIVE: CASE EVENT DATE: 20150204
